FAERS Safety Report 7394163-6 (Version None)
Quarter: 2011Q2

REPORT INFORMATION
  Report Type: 
  Country: None (occurrence: None)
  Receive Date: 20110405
  Receipt Date: 20110216
  Transmission Date: 20111010
  Serious: Yes (Other)
  Sender: FDA-Public Use
  Company Number: US-BAYER-201029712NA

PATIENT
  Sex: Female
  Weight: 99.773 kg

DRUGS (8)
  1. CLINDAMYCIN [Concomitant]
     Indication: ACNE
     Dosage: UNK
     Route: 061
     Dates: start: 20080213
  2. PRILOSEC [Concomitant]
     Indication: ABDOMINAL PAIN UPPER
     Dosage: UNK
     Dates: start: 20080201
  3. YAZ [Suspect]
     Indication: ACNE
     Route: 048
     Dates: start: 20070901, end: 20080601
  4. MULTI-VITAMINS [Concomitant]
  5. IBUPROFEN [Concomitant]
     Dosage: UNK UNK, PRN
  6. DIFFERIN [Concomitant]
     Indication: ACNE
     Dosage: 0.3 %, UNK
  7. THERAFLEX [Concomitant]
  8. YAZ [Suspect]
     Indication: DYSMENORRHOEA

REACTIONS (5)
  - GALLBLADDER DISORDER [None]
  - BILIARY DYSKINESIA [None]
  - CHOLELITHIASIS [None]
  - ABDOMINAL PAIN UPPER [None]
  - CHOLECYSTITIS [None]
